FAERS Safety Report 8957435 (Version 2)
Quarter: 2013Q1

REPORT INFORMATION
  Report Type: Report from Study
  Country: FR (occurrence: FR)
  Receive Date: 20121211
  Receipt Date: 20130130
  Transmission Date: 20140127
  Serious: Yes (Hospitalization, Other)
  Sender: FDA-Public Use
  Company Number: PHHY2012FR112782

PATIENT
  Age: 87 Year
  Sex: Female

DRUGS (7)
  1. ACLASTA/ZOLEDRONATE [Suspect]
     Indication: OSTEOPOROTIC FRACTURE
     Dosage: 5 MG, UNK
     Route: 042
     Dates: start: 20111120
  2. OROCAL [Concomitant]
     Dosage: UNK UKN, UNK
     Dates: start: 2012, end: 2012
  3. EFFERALGAN [Concomitant]
     Dosage: UNK UKN, UNK
     Dates: start: 2012, end: 2012
  4. OPIAT [Concomitant]
     Dosage: UNK UKN, UNK
     Dates: start: 2012
  5. HOMEOPATHIC PREPARATIONS [Concomitant]
     Dosage: UNK UKN, UNK
     Dates: end: 2012
  6. ASPIRIN [Concomitant]
     Dosage: UNK UKN, UNK
  7. KARDEGIC [Concomitant]
     Indication: ARTERITIS
     Dosage: UNK UKN, UNK

REACTIONS (5)
  - Extremity necrosis [Not Recovered/Not Resolved]
  - Localised infection [Unknown]
  - Electric shock [Unknown]
  - Ingrowing nail [Unknown]
  - Spinal compression fracture [Unknown]
